FAERS Safety Report 20734983 (Version 2)
Quarter: 2022Q4

REPORT INFORMATION
  Report Type: Spontaneous
  Country: US (occurrence: US)
  Receive Date: 20220421
  Receipt Date: 20221014
  Transmission Date: 20230112
  Serious: Yes (Other)
  Sender: FDA-Public Use
  Company Number: US-SA-SAC20220420001723

PATIENT
  Age: 8 Year
  Sex: Male

DRUGS (5)
  1. ELOCTATE [Suspect]
     Active Substance: EFMOROCTOCOG ALFA
     Indication: Factor VIII deficiency
     Dosage: 831 IU, PRN (748-914) AS NEEDED FOR MILD OR MODERATE BLEEDING) ONE DOSE FOR BLEED AND SECOND DOSE IN
     Route: 042
     Dates: start: 202112
  2. ELOCTATE [Suspect]
     Active Substance: EFMOROCTOCOG ALFA
     Indication: Factor VIII deficiency
     Dosage: 831 IU, PRN (748-914) AS NEEDED FOR MILD OR MODERATE BLEEDING) ONE DOSE FOR BLEED AND SECOND DOSE IN
     Route: 042
     Dates: start: 202112
  3. ELOCTATE [Suspect]
     Active Substance: EFMOROCTOCOG ALFA
     Dosage: 1662 IU, PRN (1662 UNITS; (1496-1828) AS NEEDED FOR SEVERE BLEEDING, ONE DOSE FOR BLEED AND SECOND D
     Route: 042
  4. ELOCTATE [Suspect]
     Active Substance: EFMOROCTOCOG ALFA
     Dosage: 1662 IU, PRN (1662 UNITS; (1496-1828) AS NEEDED FOR SEVERE BLEEDING, ONE DOSE FOR BLEED AND SECOND D
     Route: 042
  5. HEMLIBRA [Concomitant]
     Active Substance: EMICIZUMAB-KXWH

REACTIONS (2)
  - Haemorrhage [Unknown]
  - Haemorrhage [Recovering/Resolving]

NARRATIVE: CASE EVENT DATE: 20221003
